FAERS Safety Report 6833600-X (Version None)
Quarter: 2010Q3

REPORT INFORMATION
  Report Type: 
  Country: None (occurrence: None)
  Receive Date: 20100712
  Receipt Date: 20070329
  Transmission Date: 20110219
  Serious: No
  Sender: FDA-Public Use
  Company Number: US-PFIZER INC-2007026834

PATIENT
  Sex: Male
  Weight: 76.2 kg

DRUGS (11)
  1. CHANTIX [Suspect]
     Indication: SMOKING CESSATION THERAPY
     Dates: start: 20070315
  2. XANAX [Suspect]
     Dates: start: 20070301
  3. METOPROLOL [Concomitant]
  4. VYTORIN [Concomitant]
  5. LISINOPRIL [Concomitant]
  6. PLAVIX [Concomitant]
  7. TRICOR [Concomitant]
  8. ACETYLSALICYLIC ACID [Concomitant]
  9. SEROQUEL [Concomitant]
  10. DEPAKOTE [Concomitant]
  11. ZOLOFT [Concomitant]

REACTIONS (2)
  - NAUSEA [None]
  - VOMITING [None]
